FAERS Safety Report 9219326 (Version 1)
Quarter: 2013Q2

REPORT INFORMATION
  Report Type: Spontaneous
  Country: GR (occurrence: GR)
  Receive Date: 20130409
  Receipt Date: 20130409
  Transmission Date: 20140414
  Serious: Yes (Hospitalization, Other)
  Sender: FDA-Public Use
  Company Number: GR-BAYER-2013-028640

PATIENT
  Age: 38 Year
  Sex: Male

DRUGS (1)
  1. CIPROXIN [Suspect]
     Indication: URINARY TRACT INFECTION
     Dosage: 500 MG, BID
     Route: 048
     Dates: start: 201210, end: 201210

REACTIONS (4)
  - Pemphigus [Not Recovered/Not Resolved]
  - Stomatitis [Not Recovered/Not Resolved]
  - Genital ulceration [Not Recovered/Not Resolved]
  - Skin lesion [Not Recovered/Not Resolved]
